FAERS Safety Report 17107141 (Version 1)
Quarter: 2019Q4

REPORT INFORMATION
  Report Type: Spontaneous
  Country: US (occurrence: US)
  Receive Date: 20191203
  Receipt Date: 20191203
  Transmission Date: 20200122
  Serious: No
  Sender: FDA-Public Use
  Company Number: US-MYLANLABS-2019M1113509

PATIENT
  Sex: Female
  Weight: 59 kg

DRUGS (1)
  1. ESTRADIOL TRANSDERMAL SYSTEM [Suspect]
     Active Substance: ESTRADIOL
     Indication: BLOOD OESTROGEN DECREASED
     Dosage: UNK
     Route: 062

REACTIONS (4)
  - Blood oestrogen decreased [Not Recovered/Not Resolved]
  - Product adhesion issue [Unknown]
  - Application site haemorrhage [Not Recovered/Not Resolved]
  - Application site rash [Not Recovered/Not Resolved]
